FAERS Safety Report 9379302 (Version 3)
Quarter: 2013Q3

REPORT INFORMATION
  Report Type: Spontaneous
  Country: TR (occurrence: TR)
  Receive Date: 20130702
  Receipt Date: 20130829
  Transmission Date: 20140515
  Serious: Yes (Death, Life-Threatening, Other)
  Sender: FDA-Public Use
  Company Number: TR-PFIZER INC-2013192610

PATIENT
  Age: 6 Year
  Sex: Female
  Weight: 21 kg

DRUGS (7)
  1. VFEND [Suspect]
     Dosage: 84 MG, 2X/DAY
     Route: 042
  2. MEROPENEM [Concomitant]
  3. AMIKACIN [Concomitant]
  4. TEICOPLANIN [Concomitant]
  5. IVIG [Concomitant]
     Dosage: ONCE WEEKLY
     Route: 042
  6. CRYOPRECIPITATE [Concomitant]
     Dosage: 6 DF, DAILY
  7. CASPOFUNGIN [Concomitant]

REACTIONS (5)
  - Pulmonary haemorrhage [Fatal]
  - Loss of consciousness [Recovered/Resolved]
  - Stupor [Recovered/Resolved]
  - Coma [Recovered/Resolved]
  - Ascites [Recovered/Resolved]
